FAERS Safety Report 7761996-3 (Version None)
Quarter: 2011Q3

REPORT INFORMATION
  Report Type: 
  Country: None (occurrence: None)
  Receive Date: 20110919
  Receipt Date: 20110919
  Transmission Date: 20111222
  Serious: Yes (Hospitalization)
  Sender: FDA-Public Use
  Company Number: None

PATIENT
  Sex: Male
  Weight: 94 kg

DRUGS (2)
  1. CASODEX [Suspect]
     Dosage: 9050 MG
  2. TRIPTORELIN PAMOATE [Suspect]
     Dosage: 22.5 MG

REACTIONS (1)
  - ACUTE MYOCARDIAL INFARCTION [None]
